FAERS Safety Report 9001351 (Version 2)
Quarter: 2013Q1

REPORT INFORMATION
  Report Type: Report from Study
  Country: NL (occurrence: NL)
  Receive Date: 20130107
  Receipt Date: 20130116
  Transmission Date: 20140127
  Serious: Yes (Other)
  Sender: FDA-Public Use
  Company Number: NL-BAXTER-2013BAX000024

PATIENT
  Sex: Male

DRUGS (6)
  1. KIOVIG 100 MG/ML SOLUTION POUR PERFUSION (20 G/200 ML) [Suspect]
     Indication: MYASTHENIA GRAVIS
     Route: 042
     Dates: start: 20111023
  2. KIOVIG 100 MG/ML SOLUTION POUR PERFUSION (20 G/200 ML) [Suspect]
     Indication: OFF LABEL USE
     Route: 042
     Dates: start: 20121016
  3. KIOVIG 100 MG/ML SOLUTION POUR PERFUSION (20 G/200 ML) [Suspect]
     Route: 042
     Dates: start: 20121214
  4. KIOVIG [Suspect]
     Indication: MYASTHENIA GRAVIS
     Route: 042
     Dates: start: 20111023
  5. KIOVIG [Suspect]
     Indication: OFF LABEL USE
     Route: 042
     Dates: start: 20121016
  6. KIOVIG [Suspect]
     Route: 042
     Dates: start: 20121214

REACTIONS (1)
  - Terminal state [Unknown]
